FAERS Safety Report 7635452-7 (Version None)
Quarter: 2011Q3

REPORT INFORMATION
  Report Type: 
  Country: None (occurrence: None)
  Receive Date: 20110726
  Receipt Date: 20110726
  Transmission Date: 20111222
  Serious: Yes (Disabling)
  Sender: FDA-Public Use
  Company Number: None

PATIENT
  Age: 11 Year
  Sex: Male
  Weight: 33.565 kg

DRUGS (1)
  1. SEROQUEL [Suspect]
     Indication: SLEEP TERROR
     Dosage: 1 TABLET
     Route: 048
     Dates: start: 20110626, end: 20110721

REACTIONS (1)
  - TARDIVE DYSKINESIA [None]
